FAERS Safety Report 8491200 (Version 2)
Quarter: 2012Q4

REPORT INFORMATION
  Report Type: 
  Country: US (occurrence: US)
  Receive Date: 20120403
  Receipt Date: 20120830
  Transmission Date: 20130627
  Serious: Yes (Hospitalization)
  Sender: FDA-Public Use
  Company Number: US-PFIZER INC-2012079404

PATIENT
  Age: 60 Year
  Sex: Male

DRUGS (1)
  1. VORICONAZOLE [Suspect]
     Indication: ASPERGILLOSIS
     Dosage: 200 mg, 1x/day
     Route: 048
     Dates: start: 201202, end: 201203

REACTIONS (1)
  - Atrial fibrillation [Recovered/Resolved with Sequelae]
